FAERS Safety Report 5286035-8 (Version None)
Quarter: 2007Q1

REPORT INFORMATION
  Report Type: 
  Country: None (occurrence: None)
  Receive Date: 20070329
  Receipt Date: 20070315
  Transmission Date: 20070707
  Serious: Yes (Other)
  Sender: FDA-Public Use
  Company Number: US_1162304

PATIENT
  Age: 84 Year
  Sex: Male

DRUGS (1)
  1. VIGAMOX [Suspect]
     Indication: ULCERATIVE KERATITIS
     Dosage: 1 GTT OS TID - QID X 5 WEEKS OPHTHALMIC
     Route: 047

REACTIONS (4)
  - CONDITION AGGRAVATED [None]
  - EYE PAIN [None]
  - ULCERATIVE KERATITIS [None]
  - VISUAL ACUITY REDUCED [None]
